FAERS Safety Report 23037010 (Version 2)
Quarter: 2023Q4

REPORT INFORMATION
  Report Type: Spontaneous
  Country: US (occurrence: US)
  Receive Date: 20231006
  Receipt Date: 20231015
  Transmission Date: 20240110
  Serious: No
  Sender: FDA-Public Use
  Company Number: US-AMGEN-USASP2023177727

PATIENT

DRUGS (1)
  1. AVSOLA [Suspect]
     Active Substance: INFLIXIMAB-AXXQ
     Indication: Product used for unknown indication
     Dosage: 6-100 MG, AVSOLA AS A LYOPHILIZED POWDER
     Route: 065

REACTIONS (3)
  - Product preparation error [Unknown]
  - Abdominal discomfort [Unknown]
  - Blood pressure increased [Unknown]
